FAERS Safety Report 10182353 (Version 1)
Quarter: 2014Q2

REPORT INFORMATION
  Report Type: Spontaneous
  Country: US (occurrence: None)
  Receive Date: 20140519
  Receipt Date: 20140519
  Transmission Date: 20141212
  Serious: Yes (Disabling, Other)
  Sender: FDA-Public Use
  Company Number: None

PATIENT
  Age: 81 Year
  Sex: Female

DRUGS (9)
  1. NEXIUM [Suspect]
     Indication: GASTROOESOPHAGEAL REFLUX DISEASE
     Route: 048
     Dates: end: 20131230
  2. OMEPRAZOLE [Suspect]
     Indication: GASTROOESOPHAGEAL REFLUX DISEASE
  3. PRAVASTATIN [Concomitant]
  4. METOPROLOL [Concomitant]
  5. ASPIRIN [Concomitant]
  6. CALCIUM CITRATE [Concomitant]
  7. VITAMIN C [Concomitant]
  8. VITAMIN D3-1000 I.U [Concomitant]
  9. NATURAL VIT E 200IU [Concomitant]

REACTIONS (10)
  - Dyskinesia [None]
  - Weight decreased [None]
  - Dizziness [None]
  - Diarrhoea [None]
  - Asthenia [None]
  - Dizziness [None]
  - Gastrointestinal bacterial infection [None]
  - Feeling abnormal [None]
  - Vitamin B12 deficiency [None]
  - Condition aggravated [None]
